FAERS Safety Report 21983693 (Version 1)
Quarter: 2023Q1

REPORT INFORMATION
  Report Type: Other
  Country: US (occurrence: None)
  Receive Date: 20230213
  Receipt Date: 20230213
  Transmission Date: 20230418
  Serious: No
  Sender: FDA-Public Use
  Company Number: US-ROCHE-3281387

PATIENT
  Age: 71 Year
  Sex: Female
  Weight: 99.880 kg

DRUGS (5)
  1. OCREVUS [Suspect]
     Active Substance: OCRELIZUMAB
     Indication: Relapsing-remitting multiple sclerosis
     Dosage: YES
     Route: 042
  2. LYSINE [Concomitant]
     Active Substance: LYSINE
  3. VITAMIN A [Concomitant]
     Active Substance: VITAMIN A
  4. BACLOFEN [Concomitant]
     Active Substance: BACLOFEN
  5. LEVOTHYROXINE [Concomitant]
     Active Substance: LEVOTHYROXINE

REACTIONS (6)
  - Uterine polyp [Not Recovered/Not Resolved]
  - Renal cyst [Not Recovered/Not Resolved]
  - Influenza [Recovered/Resolved]
  - Hypoaesthesia [Not Recovered/Not Resolved]
  - Dry skin [Not Recovered/Not Resolved]
  - Muscle spasticity [Not Recovered/Not Resolved]

NARRATIVE: CASE EVENT DATE: 20221201
